FAERS Safety Report 9445436 (Version 3)
Quarter: 2013Q3

REPORT INFORMATION
  Report Type: Spontaneous
  Country: US (occurrence: US)
  Receive Date: 20130807
  Receipt Date: 20130827
  Transmission Date: 20140515
  Serious: No
  Sender: FDA-Public Use
  Company Number: US-009507513-1308USA003103

PATIENT
  Sex: Female
  Weight: 71.2 kg

DRUGS (2)
  1. CLARITIN-D-12 [Suspect]
     Indication: SINUSITIS
     Dosage: 5 MG, BID
     Route: 048
     Dates: start: 201306
  2. CLARITIN-D-12 [Suspect]
     Indication: MEDICAL OBSERVATION
     Dosage: 5 MG, BID
     Route: 048
     Dates: start: 201308

REACTIONS (3)
  - Drug ineffective [Unknown]
  - Drug ineffective for unapproved indication [Unknown]
  - Off label use [Unknown]
